FAERS Safety Report 6177817-9 (Version None)
Quarter: 2009Q2

REPORT INFORMATION
  Report Type: 
  Country: None (occurrence: None)
  Receive Date: 20090501
  Receipt Date: 20090501
  Transmission Date: 20091009
  Serious: No
  Sender: FDA-Public Use
  Company Number: None

PATIENT
  Age: 64 Year
  Sex: Male

DRUGS (2)
  1. INSULIN [Suspect]
     Indication: DIABETES MELLITUS
     Dosage: 20 UNITS AM SQ
     Dates: start: 20060517
  2. INSULIN [Suspect]
     Dosage: 6 UNITS SLIDING SCALE SQ
     Dates: start: 20090403

REACTIONS (5)
  - HYPOGLYCAEMIA [None]
  - PROTEUS INFECTION [None]
  - RENAL FAILURE ACUTE [None]
  - TREATMENT NONCOMPLIANCE [None]
  - URINARY TRACT INFECTION [None]
